FAERS Safety Report 16087396 (Version 1)
Quarter: 2019Q1

REPORT INFORMATION
  Report Type: Spontaneous
  Country: US (occurrence: US)
  Receive Date: 20190319
  Receipt Date: 20190319
  Transmission Date: 20190418
  Serious: Yes (Hospitalization, Other)
  Sender: FDA-Public Use
  Company Number: US-UNITED THERAPEUTICS-UNT-2019-004156

PATIENT
  Age: 74 Year
  Sex: Female
  Weight: 99.77 kg

DRUGS (2)
  1. ADCIRCA [Concomitant]
     Active Substance: TADALAFIL
     Indication: PULMONARY ARTERIAL HYPERTENSION
     Route: 065
  2. REMODULIN [Suspect]
     Active Substance: TREPROSTINIL
     Indication: PULMONARY ARTERIAL HYPERTENSION
     Dosage: 0.067 ?G/KG, CONTINUING
     Route: 041
     Dates: start: 20171109

REACTIONS (1)
  - Breast cancer metastatic [Unknown]

NARRATIVE: CASE EVENT DATE: 20190302
